FAERS Safety Report 10373796 (Version 1)
Quarter: 2014Q1

REPORT INFORMATION
  Report Type: Spontaneous
  Country: US (occurrence: None)
  Receive Date: 20140306
  Receipt Date: 20140306
  Transmission Date: 20141002
  Serious: Yes (Hospitalization)
  Sender: FDA-Public Use
  Company Number: 163-21880-13074811

PATIENT
  Age: 85 Year
  Sex: Female
  Weight: 63.5 kg

DRUGS (9)
  1. REVLIMID (LENALIDOMIDE) (25 MILLIGRAM, CAPSULES) [Suspect]
     Indication: PLASMA CELL MYELOMA
     Dosage: 25 MG, 21 IN 21 D, PO
     Route: 048
     Dates: start: 201206, end: 201307
  2. COREG (CARVEDILOL) (TABLETS) [Concomitant]
  3. PAXIL (PAROXETINE HYDROCHLORIDE) (TABLETS) [Concomitant]
  4. CARDURA (DOXAZOSIN MESILATE) (TABLETS) [Concomitant]
  5. NORVASC (AMLODIPINE BESILATE) (TABLETS) [Concomitant]
  6. DIOVAN (VALSARTAN) (TABLETS) [Concomitant]
  7. GLUCOPHAGE (METFORMIN) (TABLETS) [Concomitant]
  8. LANTUS (INSULIN GLARGINE) [Concomitant]
  9. TRAMADOL (TABLETS) [Concomitant]

REACTIONS (4)
  - Fall [None]
  - Hip fracture [None]
  - Unevaluable event [None]
  - Drug ineffective [None]
